FAERS Safety Report 17599877 (Version 1)
Quarter: 2020Q1

REPORT INFORMATION
  Report Type: Spontaneous
  Country: US (occurrence: US)
  Receive Date: 20200330
  Receipt Date: 20200330
  Transmission Date: 20200409
  Serious: Yes (Other)
  Sender: FDA-Public Use
  Company Number: US-PFIZER INC-2020129685

PATIENT
  Sex: Female

DRUGS (2)
  1. MENTHOL. [Suspect]
     Active Substance: MENTHOL
     Dosage: UNK
  2. NICOTROL [Suspect]
     Active Substance: NICOTINE
     Dosage: UNK

REACTIONS (2)
  - Reaction to excipient [Unknown]
  - Choking [Unknown]
